FAERS Safety Report 5955584-9 (Version None)
Quarter: 2008Q4

REPORT INFORMATION
  Report Type: 
  Country: None (occurrence: None)
  Receive Date: 20081113
  Receipt Date: 20081110
  Transmission Date: 20090506
  Serious: Yes (Hospitalization)
  Sender: FDA-Public Use
  Company Number: CERZ-1000409

PATIENT
  Age: 46 Month
  Sex: Male
  Weight: 12.4 kg

DRUGS (3)
  1. CEREZYME [Suspect]
     Indication: GAUCHER'S DISEASE
     Dosage: 120 U, Q2W, INTRAVENOUS, 60 U/KG, Q2W, INTRAVENOUS
     Route: 042
     Dates: start: 20060630, end: 20070101
  2. CEREZYME [Suspect]
     Indication: GAUCHER'S DISEASE
     Dosage: 120 U, Q2W, INTRAVENOUS, 60 U/KG, Q2W, INTRAVENOUS
     Route: 042
     Dates: start: 20070301
  3. .. [Concomitant]

REACTIONS (2)
  - ADHESION [None]
  - OXYGEN SATURATION DECREASED [None]
